FAERS Safety Report 19072652 (Version 2)
Quarter: 2022Q1

REPORT INFORMATION
  Report Type: Report from Study
  Country: US (occurrence: US)
  Receive Date: 20210330
  Receipt Date: 20220207
  Transmission Date: 20220423
  Serious: Yes (Hospitalization, Other)
  Sender: FDA-Public Use
  Company Number: US-ABBVIE-21K-163-3815604-00

PATIENT
  Sex: Female
  Weight: 56.750 kg

DRUGS (7)
  1. SYNTHROID [Suspect]
     Active Substance: LEVOTHYROXINE SODIUM
     Indication: Hypothyroidism
     Route: 048
  2. SYNTHROID [Suspect]
     Active Substance: LEVOTHYROXINE SODIUM
     Route: 048
     Dates: start: 2015, end: 202102
  3. SYNTHROID [Suspect]
     Active Substance: LEVOTHYROXINE SODIUM
     Route: 048
     Dates: start: 202102
  4. LEVOTHYROXINE [Suspect]
     Active Substance: LEVOTHYROXINE
     Indication: Product used for unknown indication
     Route: 048
     Dates: end: 2017
  5. ARMOUR THYROID [Suspect]
     Active Substance: THYROID, PORCINE
     Indication: Product used for unknown indication
     Route: 065
     Dates: start: 2017
  6. PFIZER-BIONTECH COVID-19 VACCINE [Concomitant]
     Active Substance: TOZINAMERAN
     Indication: COVID-19 immunisation
     Route: 030
     Dates: start: 20210521, end: 20210521
  7. PFIZER-BIONTECH COVID-19 VACCINE [Concomitant]
     Active Substance: TOZINAMERAN
     Route: 030
     Dates: start: 20210611, end: 20210611

REACTIONS (12)
  - Wolff-Parkinson-White syndrome [Unknown]
  - Headache [Recovered/Resolved]
  - COVID-19 [Recovered/Resolved]
  - Dizziness [Recovered/Resolved]
  - Migraine [Recovered/Resolved]
  - Hyperhidrosis [Recovered/Resolved]
  - Gastrooesophageal reflux disease [Recovered/Resolved]
  - Asthma [Recovering/Resolving]
  - Intervertebral disc protrusion [Recovering/Resolving]
  - Bursitis [Recovering/Resolving]
  - Arthritis [Recovering/Resolving]
  - Gastrooesophageal reflux disease [Recovered/Resolved]

NARRATIVE: CASE EVENT DATE: 19930101
